FAERS Safety Report 13917872 (Version 1)
Quarter: 2017Q3

REPORT INFORMATION
  Report Type: Report from Study
  Country: US (occurrence: US)
  Receive Date: 20170829
  Receipt Date: 20170829
  Transmission Date: 20171127
  Serious: Yes (Hospitalization)
  Sender: FDA-Public Use
  Company Number: PHEH2017US027345

PATIENT

DRUGS (5)
  1. ENTRESTO [Suspect]
     Active Substance: SACUBITRIL\VALSARTAN
     Indication: PRODUCT USED FOR UNKNOWN INDICATION
     Dosage: 1 DF (24 MG OF SACUBITRIL/ 26 MG OF VALSARTAN), UNK
     Route: 065
     Dates: start: 201706
  2. COREG [Concomitant]
     Active Substance: CARVEDILOL
     Indication: PRODUCT USED FOR UNKNOWN INDICATION
     Route: 048
  3. ENTRESTO [Suspect]
     Active Substance: SACUBITRIL\VALSARTAN
     Dosage: 1 DF (49 MG OF SACUBITRIL/ 51 MG OF VALSARTAN), UNK
     Route: 065
  4. MILRINONE [Concomitant]
     Active Substance: MILRINONE
     Indication: PRODUCT USED FOR UNKNOWN INDICATION
     Route: 065
  5. ENTRESTO [Suspect]
     Active Substance: SACUBITRIL\VALSARTAN
     Dosage: 1 DF (1 (49/51 MG) TABLET IN MORNING; 1 (24/26 MG) TABLET IN THE EVENING), BID
     Route: 065

REACTIONS (6)
  - Infection [Unknown]
  - Chills [Unknown]
  - Blood potassium increased [Unknown]
  - Hypotension [Unknown]
  - Dyspnoea [Recovering/Resolving]
  - Ejection fraction decreased [Unknown]
